FAERS Safety Report 8475569-0 (Version None)
Quarter: 2012Q2

REPORT INFORMATION
  Report Type: 
  Country: None (occurrence: None)
  Receive Date: 20120628
  Receipt Date: 20120619
  Transmission Date: 20120825
  Serious: Yes (Hospitalization, Other)
  Sender: FDA-Public Use
  Company Number: ES-ABBOTT-12P-144-0947594-00

PATIENT
  Age: 56 Year
  Sex: Male

DRUGS (6)
  1. FENTANYL [Concomitant]
     Indication: ANKYLOSING SPONDYLITIS
     Dosage: MODERATED DOSES
     Dates: start: 20100101
  2. AMLODIPINE [Concomitant]
     Indication: HYPERTENSION
     Route: 048
  3. HUMIRA [Suspect]
     Indication: ANKYLOSING SPONDYLITIS
     Route: 058
     Dates: start: 20100101, end: 20120501
  4. ATENOLOL [Concomitant]
     Indication: HYPERTENSION
     Route: 048
  5. SIMVASTATIN [Concomitant]
     Indication: HYPERCHOLESTEROLAEMIA
     Route: 048
  6. STEROIDS [Concomitant]
     Indication: ANKYLOSING SPONDYLITIS
     Dosage: LOW DOSES
     Dates: start: 20050101

REACTIONS (4)
  - HAEMATURIA [None]
  - RENAL FAILURE ACUTE [None]
  - GLOMERULONEPHRITIS MEMBRANOPROLIFERATIVE [None]
  - NEPHROTIC SYNDROME [None]
